FAERS Safety Report 8447729-6 (Version None)
Quarter: 2012Q2

REPORT INFORMATION
  Report Type: 
  Country: None (occurrence: None)
  Receive Date: 20120619
  Receipt Date: 20120612
  Transmission Date: 20120825
  Serious: Yes (Death, Hospitalization)
  Sender: FDA-Public Use
  Company Number: US-SANOFI-AVENTIS-2012SA042595

PATIENT
  Age: 73 Year
  Sex: Female

DRUGS (3)
  1. ACETAMINOPHEN [Suspect]
     Route: 065
  2. VICODIN [Suspect]
     Route: 065
  3. MULTAQ [Suspect]
     Route: 065

REACTIONS (1)
  - HEPATIC FAILURE [None]
